FAERS Safety Report 9312648 (Version 2)
Quarter: 2013Q2

REPORT INFORMATION
  Report Type: Spontaneous
  Country: VE (occurrence: VE)
  Receive Date: 20130528
  Receipt Date: 20130606
  Transmission Date: 20140414
  Serious: Yes (Other)
  Sender: FDA-Public Use
  Company Number: VE-BAYER-2013-065500

PATIENT
  Age: 58 Year
  Sex: Male

DRUGS (6)
  1. CORASPIRINA [Suspect]
     Indication: MYOCARDIAL INFARCTION
     Dosage: UNK
     Route: 048
     Dates: start: 201209, end: 201301
  2. CORASPIRINA [Suspect]
     Indication: MYOCARDIAL INFARCTION
     Dosage: UNK
     Dates: start: 20130509
  3. PLAVIX [Concomitant]
     Indication: MYOCARDIAL INFARCTION
     Dosage: UNK
     Dates: start: 201209, end: 201301
  4. INSULIN [Concomitant]
     Indication: DIABETES MELLITUS
  5. COZAAR [Concomitant]
     Indication: HYPERTENSION
  6. DILATREND [Concomitant]
     Indication: HYPERTENSION

REACTIONS (2)
  - Retinal haemorrhage [Recovered/Resolved]
  - Blindness unilateral [Recovered/Resolved]
